FAERS Safety Report 9753665 (Version 1)
Quarter: 2013Q4

REPORT INFORMATION
  Report Type: Spontaneous
  Country: US (occurrence: US)
  Receive Date: 20131213
  Receipt Date: 20131213
  Transmission Date: 20140711
  Serious: Yes (Hospitalization)
  Sender: FDA-Public Use
  Company Number: PHHY2013US142740

PATIENT
  Age: 68 Year
  Sex: Male

DRUGS (6)
  1. HYDROCHLOROTHIAZIDE [Suspect]
     Indication: HYPERTENSION
  2. IBUPROFEN [Suspect]
     Indication: PAIN
  3. LOSARTAN [Suspect]
     Indication: HYPERTENSION
  4. OMEPRAZOLE [Suspect]
  5. AURANOFIN [Suspect]
     Indication: PSORIATIC ARTHROPATHY
  6. ASPIRIN [Suspect]

REACTIONS (5)
  - Tubulointerstitial nephritis [Unknown]
  - Blood urea increased [Unknown]
  - Blood creatinine increased [Unknown]
  - Glomerular filtration rate decreased [Unknown]
  - Renal failure acute [Unknown]
